FAERS Safety Report 4752193-4 (Version None)
Quarter: 2005Q3

REPORT INFORMATION
  Report Type: 
  Country: None (occurrence: None)
  Receive Date: 20050824
  Receipt Date: 20050824
  Transmission Date: 20060218
  Serious: Yes (Hospitalization, Other)
  Sender: FDA-Public Use
  Company Number: None

PATIENT
  Sex: Male
  Weight: 77 kg

DRUGS (5)
  1. IRINOTECAN [Suspect]
     Indication: GLIOBLASTOMA MULTIFORME
     Dosage: SEE IMAGE
     Route: 042
     Dates: start: 20050818
  2. TEMOZOLOMIDE [Suspect]
     Dosage: SEE IMAGE
     Dates: start: 20050808
  3. COUMADIN [Concomitant]
  4. KEPPRA [Concomitant]
  5. NEURONTIN [Concomitant]

REACTIONS (7)
  - CELLULITIS [None]
  - DIFFICULTY IN WALKING [None]
  - ERYTHEMA [None]
  - FALL [None]
  - INFECTION [None]
  - JOINT SWELLING [None]
  - SKIN INJURY [None]
